FAERS Safety Report 5710311-5 (Version None)
Quarter: 2008Q2

REPORT INFORMATION
  Report Type: 
  Country: None (occurrence: None)
  Receive Date: 20080418
  Receipt Date: 20080409
  Transmission Date: 20081010
  Serious: Yes (Hospitalization)
  Sender: FDA-Public Use
  Company Number: US-ABBOTT-08P-163-0443587-00

PATIENT
  Sex: Female
  Weight: 52.664 kg

DRUGS (1)
  1. HUMIRA [Suspect]
     Indication: RHEUMATOID ARTHRITIS
     Route: 058
     Dates: start: 20040101, end: 20080108

REACTIONS (6)
  - ARTHRALGIA [None]
  - DEHYDRATION [None]
  - ELECTROLYTE IMBALANCE [None]
  - GASTRITIS [None]
  - JOINT SWELLING [None]
  - WEIGHT DECREASED [None]
